FAERS Safety Report 5498668-4 (Version None)
Quarter: 2007Q4

REPORT INFORMATION
  Report Type: 
  Country: None (occurrence: None)
  Receive Date: 20071026
  Receipt Date: 20071017
  Transmission Date: 20080405
  Serious: Yes (Other)
  Sender: FDA-Public Use
  Company Number: US-JNJFOC-20071005342

PATIENT
  Sex: Female
  Weight: 95.26 kg

DRUGS (9)
  1. DURAGESIC-100 [Suspect]
     Indication: PAIN
     Route: 062
  2. HYDROCODONE [Concomitant]
     Indication: BREAKTHROUGH PAIN
     Dosage: 7.5MG/500MG, 1 OR 2 EVERY 4-6 HOURS, AS NEEDED
     Route: 048
  3. NEURONTIN [Concomitant]
     Indication: COMPLEX REGIONAL PAIN SYNDROME
     Route: 048
  4. BACLOFEN [Concomitant]
     Indication: COMPLEX REGIONAL PAIN SYNDROME
     Route: 048
  5. ADVAIR DISKUS 100/50 [Concomitant]
     Indication: ASTHMA
     Route: 055
  6. FLOVENT HFA [Concomitant]
     Indication: ASTHMA
     Dosage: 2 PUFFS TWICE A DAY
     Route: 055
  7. LITHIUM CARBONATE [Concomitant]
     Indication: BIPOLAR DISORDER
     Dosage: 1 IN THE MORNING, 3 AT BEDTIME
     Route: 048
  8. DEPAKOTE [Concomitant]
     Indication: BIPOLAR DISORDER
     Route: 048
  9. AVIANE-21 [Concomitant]
     Indication: CONTRACEPTION
     Route: 065

REACTIONS (5)
  - APPLICATION SITE EXFOLIATION [None]
  - ASTHMA [None]
  - BIPOLAR DISORDER [None]
  - INSOMNIA [None]
  - URINARY TRACT INFECTION [None]
